FAERS Safety Report 19306713 (Version 1)
Quarter: 2021Q2

REPORT INFORMATION
  Report Type: Spontaneous
  Country: US (occurrence: US)
  Receive Date: 20210526
  Receipt Date: 20210526
  Transmission Date: 20210717
  Serious: No
  Sender: FDA-Public Use
  Company Number: US-NOVITIUMPHARMA-2021USNVP00043

PATIENT

DRUGS (1)
  1. CHLORZOXAZONE TABLETS, USP 500 MG [Suspect]
     Active Substance: CHLORZOXAZONE
     Indication: MUSCLE SPASMS
     Route: 048

REACTIONS (3)
  - Foreign body in gastrointestinal tract [Recovering/Resolving]
  - Hypoaesthesia oral [Unknown]
  - Oesophageal discomfort [Recovering/Resolving]
